FAERS Safety Report 25893121 (Version 5)
Quarter: 2025Q4

REPORT INFORMATION
  Report Type: Report from Study
  Country: US (occurrence: US)
  Receive Date: 20251008
  Receipt Date: 20251128
  Transmission Date: 20260117
  Serious: Yes (Other)
  Sender: ACADIA PHARMACEUTICALS
  Company Number: US-ACADIA PHARMACEUTICALS INC.-ACA-2025-PIM-009691

PATIENT
  Sex: Female

DRUGS (8)
  1. NUPLAZID [Suspect]
     Active Substance: PIMAVANSERIN TARTRATE
     Indication: Parkinson^s disease psychosis
     Dosage: 34 MILLIGRAM, QD
     Route: 048
  2. CODEINE SULFATE [Concomitant]
     Active Substance: CODEINE SULFATE
  3. MELATONIN [Concomitant]
     Active Substance: MELATONIN
  4. MECLIZINE HYDROCHLORIDE [Concomitant]
     Active Substance: MECLIZINE HYDROCHLORIDE
  5. RYTARY [Concomitant]
     Active Substance: CARBIDOPA\LEVODOPA
  6. VITAMIN D3 [Concomitant]
     Active Substance: CHOLECALCIFEROL
  7. SIMVASTATIN [Concomitant]
     Active Substance: SIMVASTATIN
  8. VESICARE [Concomitant]
     Active Substance: SOLIFENACIN SUCCINATE

REACTIONS (10)
  - Hallucination [Unknown]
  - Parkinson^s disease psychosis [Unknown]
  - Drug interaction [Unknown]
  - Constipation [Unknown]
  - Illness [Unknown]
  - Malaise [Unknown]
  - Head discomfort [Unknown]
  - Delusion [Unknown]
  - Product distribution issue [Unknown]
  - Therapy interrupted [Unknown]
